FAERS Safety Report 18930028 (Version 1)
Quarter: 2021Q1

REPORT INFORMATION
  Report Type: Report from Study
  Country: GB (occurrence: BR)
  Receive Date: 20210223
  Receipt Date: 20210223
  Transmission Date: 20210420
  Serious: Yes (Death)
  Sender: FDA-Public Use
  Company Number: GB-PFIZER INC-2015245064

PATIENT

DRUGS (2)
  1. VINCRISTINE SULFATE. [Suspect]
     Active Substance: VINCRISTINE SULFATE
     Indication: NEPHROBLASTOMA
     Dosage: 1.5 MG/M2 EACH WEEK, AT WEEKS 1?8, 11, 12, 14, 15, 17, 18, 20, 21, 23, 24, 26, AND 27
     Route: 040
  2. ACTINOMYCIN D [Suspect]
     Active Substance: DACTINOMYCIN
     Indication: NEPHROBLASTOMA
     Dosage: 45 MCG/KG, EVERY 3 WEEKS FROM WEEK 2
     Route: 040

REACTIONS (1)
  - Sepsis [Fatal]
